FAERS Safety Report 5195000-0 (Version None)
Quarter: 2006Q4

REPORT INFORMATION
  Report Type: 
  Country: None (occurrence: None)
  Receive Date: 20061229
  Receipt Date: 20061116
  Transmission Date: 20070319
  Serious: Yes (Life-Threatening, Disabling)
  Sender: FDA-Public Use
  Company Number: JP-MERCK-0611USA05927

PATIENT
  Age: 76 Year
  Sex: Male

DRUGS (6)
  1. PEPCID [Suspect]
     Indication: PANCREATITIS
     Route: 042
     Dates: start: 20061020, end: 20061111
  2. PRIMAXIN [Suspect]
     Indication: PANCREATITIS
     Route: 042
     Dates: start: 20061020, end: 20061111
  3. FUTHAN [Suspect]
     Indication: PANCREATITIS
     Route: 042
     Dates: start: 20061020, end: 20061111
  4. SOLITA T-1 [Concomitant]
     Route: 042
     Dates: start: 20061020
  5. PRIMPERAN TAB [Concomitant]
     Route: 042
     Dates: start: 20061020
  6. CALCIUM GLUCONATE [Concomitant]
     Route: 042
     Dates: start: 20061020

REACTIONS (2)
  - NEUTROPHIL COUNT DECREASED [None]
  - PYREXIA [None]
